FAERS Safety Report 5029407-9 (Version None)
Quarter: 2006Q2

REPORT INFORMATION
  Report Type: 
  Country: None (occurrence: None)
  Receive Date: 20060613
  Receipt Date: 20060601
  Transmission Date: 20061013
  Serious: Yes (Life-Threatening, Hospitalization, Other)
  Sender: FDA-Public Use
  Company Number: 2006031177

PATIENT
  Age: 92 Year
  Sex: Female
  Weight: 63 kg

DRUGS (5)
  1. NORVASC [Suspect]
     Indication: HYPERTENSION
     Dosage: 5 MG (5 MG, DAILY), ORAL
     Route: 048
     Dates: start: 20010305, end: 20051213
  2. CLARITIN [Suspect]
     Indication: PRURITUS
     Dosage: 10 MG (10 MG, DAILY), ORAL
     Route: 048
     Dates: start: 20051115, end: 20051213
  3. CLARITIN [Suspect]
     Indication: RASH
     Dosage: 10 MG (10 MG, DAILY), ORAL
     Route: 048
     Dates: start: 20051115, end: 20051213
  4. ALLOPURINOL [Suspect]
     Indication: HYPERURICAEMIA
     Dosage: 200 MG (200 MG, DAILY), ORAL
     Route: 048
     Dates: start: 20051019, end: 20051213
  5. OLMEEC (OLMESARTAN) [Suspect]
     Indication: HYPERTENSION
     Dosage: 20 MG (20 MG, DAILY),ORAL
     Route: 048
     Dates: start: 20050812

REACTIONS (12)
  - ASTHMA [None]
  - ECZEMA [None]
  - GASTROINTESTINAL HAEMORRHAGE [None]
  - HYPERTENSION [None]
  - HYPERURICAEMIA [None]
  - MELAENA [None]
  - PLATELET COUNT DECREASED [None]
  - PNEUMONIA [None]
  - PRURITUS [None]
  - PURPURA [None]
  - RASH [None]
  - REFUSAL OF TREATMENT BY PATIENT [None]
